FAERS Safety Report 22148418 (Version 1)
Quarter: 2023Q1

REPORT INFORMATION
  Report Type: Spontaneous
  Country: US (occurrence: US)
  Receive Date: 20230328
  Receipt Date: 20230328
  Transmission Date: 20230417
  Serious: No
  Sender: FDA-Public Use
  Company Number: US-SA-SAC20230327001450

PATIENT
  Age: 56 Year
  Sex: Male
  Weight: 90 kg

DRUGS (5)
  1. KEVZARA [Suspect]
     Active Substance: SARILUMAB
     Indication: Rheumatoid arthritis
     Dosage: 200 MG, QOW
     Route: 058
     Dates: start: 202106
  2. RINVOQ [Concomitant]
     Active Substance: UPADACITINIB
     Indication: Pain
     Dosage: UNK
  3. HYDROCHLOROTHIAZIDE [Concomitant]
     Active Substance: HYDROCHLOROTHIAZIDE
     Dosage: 25 MG
  4. FISH OIL [Concomitant]
     Active Substance: FISH OIL
     Dosage: 1200 MG
  5. PREGABALIN [Concomitant]
     Active Substance: PREGABALIN
     Dosage: 150 MG

REACTIONS (1)
  - Bronchitis [Recovered/Resolved]

NARRATIVE: CASE EVENT DATE: 20220215
